FAERS Safety Report 10226644 (Version 1)
Quarter: 2014Q2

REPORT INFORMATION
  Report Type: Spontaneous
  Country: US (occurrence: US)
  Receive Date: 20140609
  Receipt Date: 20140609
  Transmission Date: 20141212
  Serious: Yes (Life-Threatening, Hospitalization, Other)
  Sender: FDA-Public Use
  Company Number: US-RB-068354-14

PATIENT
  Age: 70 Year
  Sex: Male

DRUGS (10)
  1. SUBOXONE TABLET [Suspect]
     Indication: PAIN
     Dosage: DOSING DETAILS UNKNOWN
     Route: 060
     Dates: start: 2010
  2. SUBOXONE FILM [Suspect]
     Indication: PAIN
     Dosage: SUBOXONE FILM; DOSING DETAILS UNKNOWN
     Route: 060
     Dates: end: 2012
  3. SUBUTEX [Suspect]
     Indication: PAIN
     Dosage: DOSING DETAILS UNKNOWN
     Route: 060
     Dates: start: 2012
  4. BUPRENORPHINE GENERIC [Suspect]
     Indication: PAIN
     Dosage: CUTTING TABLETS
     Route: 060
     Dates: end: 20140520
  5. LORAZEPAM [Suspect]
     Dosage: DOSING DETAILS UNKNOWN
     Route: 048
  6. LORAZEPAM [Suspect]
     Indication: ANXIETY
     Dosage: TOOK 60 ^PILLS^ IN A SUICIDE ATTEMPT
     Route: 048
     Dates: start: 20140523, end: 20140523
  7. UNSPECIFIED ANTIHYPERTENSIVE [Concomitant]
     Indication: HYPERTENSION
     Dosage: DOSING DETAILS UNKNOWN
     Route: 048
  8. LEVODOPA [Concomitant]
     Indication: PARKINSON^S DISEASE
     Dosage: DOSING DETAILS UNKNOWN
     Route: 048
  9. SYNTHROID [Concomitant]
     Indication: THYROID DISORDER
     Dosage: DOSING DETAILS UNKNOWN
     Route: 048
  10. EFFEXOR [Concomitant]
     Indication: DEPRESSION
     Route: 048

REACTIONS (6)
  - Off label use [Recovered/Resolved]
  - Wrong technique in drug usage process [Recovered/Resolved]
  - Pain [Not Recovered/Not Resolved]
  - Insomnia [Not Recovered/Not Resolved]
  - Suicide attempt [Recovered/Resolved]
  - Suicidal ideation [Not Recovered/Not Resolved]
